FAERS Safety Report 18222598 (Version 1)
Quarter: 2020Q3

REPORT INFORMATION
  Report Type: Spontaneous
  Country: ES (occurrence: ES)
  Receive Date: 20200902
  Receipt Date: 20200902
  Transmission Date: 20201103
  Serious: Yes (Hospitalization)
  Sender: FDA-Public Use
  Company Number: ES-BIOGEN-2020BI00917532

PATIENT
  Age: 40 Year
  Sex: Female

DRUGS (1)
  1. TYSABRI [Suspect]
     Active Substance: NATALIZUMAB
     Indication: MULTIPLE SCLEROSIS
     Dosage: INFUSED OVER 1 HOUR
     Route: 042
     Dates: start: 20160621

REACTIONS (4)
  - Balance disorder [Unknown]
  - Dizziness [Unknown]
  - Multiple sclerosis relapse [Unknown]
  - Vertigo [Unknown]

NARRATIVE: CASE EVENT DATE: 202008
